FAERS Safety Report 6428071-1 (Version None)
Quarter: 2009Q4

REPORT INFORMATION
  Report Type: 
  Country: None (occurrence: None)
  Receive Date: 20091105
  Receipt Date: 20091026
  Transmission Date: 20100525
  Serious: Yes (Hospitalization)
  Sender: FDA-Public Use
  Company Number: LT-ROCHE-664683

PATIENT
  Age: 54 Year
  Sex: Female

DRUGS (2)
  1. XELODA [Suspect]
     Indication: COLON CANCER
     Dosage: 4850 MG/M2 DAILY DOSE
     Route: 048
     Dates: start: 20090301, end: 20090801
  2. FRAGMIN [Concomitant]

REACTIONS (1)
  - ISCHAEMIC STROKE [None]
